FAERS Safety Report 4505883-2 (Version None)
Quarter: 2004Q4

REPORT INFORMATION
  Report Type: 
  Country: None (occurrence: None)
  Receive Date: 20041025
  Receipt Date: 20040701
  Transmission Date: 20050328
  Serious: Yes (Hospitalization, Other)
  Sender: FDA-Public Use
  Company Number: US-JNJFOC-20040301627

PATIENT
  Age: 62 Year
  Sex: Female
  Weight: 43.0917 kg

DRUGS (30)
  1. REMICADE [Suspect]
     Indication: RHEUMATOID ARTHRITIS
     Dosage: 200 MG, INTRAVENOUS
     Route: 042
     Dates: start: 20020410
  2. REMICADE [Suspect]
     Indication: RHEUMATOID ARTHRITIS
     Dosage: 200 MG, INTRAVENOUS
     Route: 042
     Dates: start: 20020522
  3. REMICADE [Suspect]
     Indication: RHEUMATOID ARTHRITIS
     Dosage: 200 MG, INTRAVENOUS
     Route: 042
     Dates: start: 20020717
  4. REMICADE [Suspect]
     Indication: RHEUMATOID ARTHRITIS
     Dosage: 200 MG, INTRAVENOUS
     Route: 042
     Dates: start: 20020911
  5. REMICADE [Suspect]
     Indication: RHEUMATOID ARTHRITIS
     Dosage: 200 MG, INTRAVENOUS
     Route: 042
     Dates: start: 20021106
  6. REMICADE [Suspect]
     Indication: RHEUMATOID ARTHRITIS
     Dosage: 200 MG, INTRAVENOUS
     Route: 042
     Dates: start: 20030103
  7. REMICADE [Suspect]
     Indication: RHEUMATOID ARTHRITIS
     Dosage: 200 MG, INTRAVENOUS
     Route: 042
     Dates: start: 20030224
  8. REMICADE [Suspect]
     Indication: RHEUMATOID ARTHRITIS
     Dosage: 200 MG, INTRAVENOUS
     Route: 042
     Dates: start: 20030423
  9. REMICADE [Suspect]
     Indication: RHEUMATOID ARTHRITIS
     Dosage: 200 MG, INTRAVENOUS
     Route: 042
     Dates: start: 20030424
  10. REMICADE [Suspect]
     Indication: RHEUMATOID ARTHRITIS
     Dosage: 200 MG, INTRAVENOUS
     Route: 042
     Dates: start: 20030618
  11. REMICADE [Suspect]
  12. REMICADE [Suspect]
  13. REMICADE [Suspect]
  14. REMICADE [Suspect]
  15. REMICADE [Suspect]
  16. REMICADE [Suspect]
  17. REMICADE [Suspect]
  18. REMICADE [Suspect]
  19. METHOTREXATE [Suspect]
     Indication: RHEUMATOID ARTHRITIS
     Dosage: 15 + 10 MG, 1 IN 1 WEEK
     Dates: end: 20030605
  20. METHOTREXATE [Suspect]
     Indication: RHEUMATOID ARTHRITIS
     Dosage: 15 + 10 MG, 1 IN 1 WEEK
     Dates: start: 20030721
  21. SULFATE (FERROUS SULFATE) [Concomitant]
  22. FOLIC AICD (FOLIC ACID) [Concomitant]
  23. DARVOCET [Concomitant]
  24. DOXEPIN (DOXEPIN) [Concomitant]
  25. PREMARIN (ESTROGENS CONJUGATED) CREAM [Concomitant]
  26. PROVERA [Concomitant]
  27. SULFASALAZINE [Concomitant]
  28. FOSAMAX [Concomitant]
  29. SALSALATE (SALSALATE) [Concomitant]
  30. CALCIUM WITH VITAMIN D (CALCIUM WITH VITAMIN D) [Concomitant]

REACTIONS (3)
  - BRONCHITIS [None]
  - CATARACT OPERATION [None]
  - LUPUS-LIKE SYNDROME [None]
